FAERS Safety Report 18796812 (Version 3)
Quarter: 2021Q1

REPORT INFORMATION
  Report Type: Spontaneous
  Country: AT (occurrence: AT)
  Receive Date: 20210127
  Receipt Date: 20210315
  Transmission Date: 20210419
  Serious: Yes (Death, Hospitalization, Other)
  Sender: FDA-Public Use
  Company Number: NVSC2021AT017082

PATIENT
  Age: 58 Year
  Sex: Male

DRUGS (4)
  1. PEGFILGRASTIM [Suspect]
     Active Substance: PEGFILGRASTIM
     Indication: INFECTION
     Dosage: 1 AMPULE, SINGLE (STRENGTH 6 MG, PREOPERATIVE)
     Route: 058
     Dates: start: 20170719, end: 20170719
  2. PEGFILGRASTIM [Suspect]
     Active Substance: PEGFILGRASTIM
     Indication: LEUKOPENIA
  3. FLUCONAZOLE. [Concomitant]
     Active Substance: FLUCONAZOLE
     Indication: EVIDENCE BASED TREATMENT
     Dosage: 400 MG, DAILY
     Route: 042
  4. MEROPENEM. [Concomitant]
     Active Substance: MEROPENEM
     Indication: EVIDENCE BASED TREATMENT
     Dosage: 1 G, Q8H (3?DAY, EXTENDED FOR ANOTHER 5 DAYS)
     Route: 042

REACTIONS (3)
  - Aspergillus infection [Fatal]
  - Off label use [Unknown]
  - Pyrexia [Fatal]
